FAERS Safety Report 7364202-7 (Version None)
Quarter: 2011Q1

REPORT INFORMATION
  Report Type: 
  Country: None (occurrence: None)
  Receive Date: 20110321
  Receipt Date: 20110314
  Transmission Date: 20110831
  Serious: Yes (Death)
  Sender: FDA-Public Use
  Company Number: US-US-EMD SERONO, INC.-7047950

PATIENT
  Sex: Male

DRUGS (2)
  1. NOVANTRONE [Suspect]
     Dates: start: 20101124, end: 20101220
  2. IPILIMUMAB [Suspect]
     Indication: PROSTATE CANCER
     Route: 042
     Dates: start: 20101005, end: 20101028

REACTIONS (4)
  - SUBDURAL HAEMATOMA [None]
  - HAEMOGLOBIN DECREASED [None]
  - THROMBOCYTOPENIA [None]
  - PROCEDURAL COMPLICATION [None]
